FAERS Safety Report 8583506-3 (Version None)
Quarter: 2012Q3

REPORT INFORMATION
  Report Type: 
  Country: None (occurrence: None)
  Receive Date: 20120809
  Receipt Date: 20120803
  Transmission Date: 20120928
  Serious: Yes (Hospitalization, Other)
  Sender: FDA-Public Use
  Company Number: HU-BAXTER-2012BAX013684

PATIENT
  Sex: Female

DRUGS (3)
  1. DIANEAL PD4 GLUCOSE 2,27% PERITONEALIS DIALIZALO OLDAT [Suspect]
     Indication: PERITONEAL DIALYSIS
     Route: 033
     Dates: start: 20120614
  2. DIANEAL PD4 GLUCOSE 2,27% PERITONEALIS DIALIZALO OLDAT [Suspect]
     Route: 033
     Dates: start: 20120713
  3. EXTRANEAL [Suspect]
     Indication: PERITONEAL DIALYSIS
     Route: 033
     Dates: start: 20120614

REACTIONS (2)
  - HYPERTENSIVE CRISIS [None]
  - NONINFECTIOUS PERITONITIS [None]
